FAERS Safety Report 4430078-0 (Version None)
Quarter: 2004Q3

REPORT INFORMATION
  Report Type: 
  Country: None (occurrence: None)
  Receive Date: 20040816
  Receipt Date: 20040802
  Transmission Date: 20050211
  Serious: No
  Sender: FDA-Public Use
  Company Number: A01200403707

PATIENT
  Age: 61 Year
  Sex: Male

DRUGS (4)
  1. CLOPIDOGREL BISULFATE [Suspect]
     Dosage: 75 MG QD, 1 UNIT QD, ORAL
     Route: 048
     Dates: start: 19990602, end: 19990608
  2. ACETYLSALICYLIC ACID SRT [Suspect]
     Indication: MYOCARDIAL ISCHAEMIA
     Dosage: 1 UNIT QD
     Dates: end: 19990608
  3. CARDIZEM CD [Concomitant]
  4. LIPITOR [Concomitant]

REACTIONS (7)
  - ABDOMINAL PAIN [None]
  - ANGINA PECTORIS [None]
  - DYSPNOEA [None]
  - MELAENA [None]
  - OESOPHAGITIS [None]
  - PALLOR [None]
  - SYNCOPE [None]
